FAERS Safety Report 12584823 (Version 1)
Quarter: 2016Q3

REPORT INFORMATION
  Report Type: Report from Study
  Country: US (occurrence: US)
  Receive Date: 20160722
  Receipt Date: 20160722
  Transmission Date: 20161109
  Serious: Yes (Death, Hospitalization)
  Sender: FDA-Public Use
  Company Number: US-ACTELION-A-US2016-136830

PATIENT
  Age: 81 Year
  Sex: Male

DRUGS (5)
  1. UPTRAVI [Suspect]
     Active Substance: SELEXIPAG
     Dosage: 800 MCG, BID
     Route: 048
  2. UPTRAVI [Suspect]
     Active Substance: SELEXIPAG
     Dosage: 1000 MCG, BID
     Route: 048
  3. UPTRAVI [Suspect]
     Active Substance: SELEXIPAG
     Indication: PULMONARY ARTERIAL HYPERTENSION
     Dosage: 400 MCG, BID
     Route: 048
     Dates: start: 20160505
  4. WARFARIN [Concomitant]
     Active Substance: WARFARIN
  5. LETAIRIS [Concomitant]
     Active Substance: AMBRISENTAN

REACTIONS (13)
  - Death [Fatal]
  - Dizziness [Unknown]
  - Melaena [Unknown]
  - Nausea [Unknown]
  - Gastrointestinal haemorrhage [Unknown]
  - Arthralgia [Unknown]
  - Pain in extremity [Unknown]
  - Vomiting [Unknown]
  - Weight decreased [Unknown]
  - Abdominal pain upper [Unknown]
  - Myalgia [Unknown]
  - Decreased appetite [Unknown]
  - Abdominal discomfort [Unknown]

NARRATIVE: CASE EVENT DATE: 20160520
